FAERS Safety Report 8777960 (Version 1)
Quarter: 2012Q4

REPORT INFORMATION
  Report Type: 
  Country: KR (occurrence: KR)
  Receive Date: 20120912
  Receipt Date: 20120912
  Transmission Date: 20130627
  Serious: Yes (Other)
  Sender: FDA-Public Use
  Company Number: PHHY2012KR078189

PATIENT
  Age: 79 Year
  Sex: Male

DRUGS (1)
  1. VANCOMYCIN [Suspect]
     Indication: STAPHYLOCOCCAL INFECTION

REACTIONS (4)
  - Infective spondylitis [Recovering/Resolving]
  - Staphylococcal infection [Recovering/Resolving]
  - Drug resistance [Unknown]
  - Back pain [Recovering/Resolving]
